FAERS Safety Report 11114032 (Version 1)
Quarter: 2015Q2

REPORT INFORMATION
  Report Type: Report from Study
  Country: FR (occurrence: FR)
  Receive Date: 20150514
  Receipt Date: 20150514
  Transmission Date: 20150821
  Serious: Yes (Hospitalization)
  Sender: FDA-Public Use
  Company Number: FR-GLAXOSMITHKLINE-FR2015GSK064335

PATIENT
  Age: 64 Year
  Sex: Male

DRUGS (8)
  1. CRESTOR [Concomitant]
     Active Substance: ROSUVASTATIN CALCIUM
  2. EZETROL [Concomitant]
     Active Substance: EZETIMIBE
  3. PLAVIX [Concomitant]
     Active Substance: CLOPIDOGREL BISULFATE
  4. OMEGA-3-ACID ETHYL ESTERS. [Suspect]
     Active Substance: OMEGA-3-ACID ETHYL ESTERS
     Indication: ISCHAEMIC HEART DISEASE PROPHYLAXIS
     Dosage: UNK
     Dates: start: 20070315, end: 20130325
  5. KARDEGIC [Concomitant]
     Active Substance: ASPIRIN LYSINE
  6. ODRIK [Concomitant]
     Active Substance: TRANDOLAPRIL
  7. TAREG [Concomitant]
     Active Substance: VALSARTAN
  8. SELOZOK [Concomitant]
     Active Substance: METOPROLOL SUCCINATE

REACTIONS (1)
  - Hiatus hernia [Unknown]

NARRATIVE: CASE EVENT DATE: 20110401
